FAERS Safety Report 24342613 (Version 1)
Quarter: 2024Q3

REPORT INFORMATION
  Report Type: Spontaneous
  Country: FR (occurrence: FR)
  Receive Date: 20240920
  Receipt Date: 20240920
  Transmission Date: 20241017
  Serious: Yes (Hospitalization)
  Sender: SANOFI AVENTIS
  Company Number: None

PATIENT
  Age: 55 Year
  Sex: Male
  Weight: 56 kg

DRUGS (3)
  1. PERICIAZINE [Suspect]
     Active Substance: PERICIAZINE
     Indication: Medication error
     Dosage: 10 MG
     Route: 048
     Dates: start: 20240812, end: 20240812
  2. BISOPROLOL FUMARATE [Suspect]
     Active Substance: BISOPROLOL FUMARATE
     Indication: Medication error
     Dosage: 5 MG
     Route: 048
     Dates: start: 20240812, end: 20240812
  3. IRBESARTAN [Suspect]
     Active Substance: IRBESARTAN
     Indication: Medication error
     Dosage: 150 MG
     Route: 048
     Dates: start: 20240812, end: 20240812

REACTIONS (2)
  - Loss of consciousness [Recovered/Resolved]
  - Wrong patient received product [Unknown]

NARRATIVE: CASE EVENT DATE: 20240812
